FAERS Safety Report 5470727-1 (Version None)
Quarter: 2007Q3

REPORT INFORMATION
  Report Type: 
  Country: None (occurrence: None)
  Receive Date: 20070928
  Receipt Date: 20070914
  Transmission Date: 20080115
  Serious: Yes (Other)
  Sender: FDA-Public Use
  Company Number: JP-ASTRAZENECA-2007AP06086

PATIENT
  Age: 16 Year
  Sex: Female

DRUGS (6)
  1. SEROQUEL [Suspect]
     Indication: SCHIZOPHRENIA
     Route: 048
  2. ZYPREXA [Concomitant]
     Route: 048
  3. AKINETON [Concomitant]
     Route: 048
  4. FLUNITRAZEPAM [Concomitant]
     Route: 048
  5. ALPRAZOLAM [Concomitant]
     Route: 048
  6. VITAMIN PREPARATIONS [Concomitant]
     Route: 048

REACTIONS (3)
  - DIARRHOEA [None]
  - DRUG ERUPTION [None]
  - PYREXIA [None]
